FAERS Safety Report 7792235-5 (Version None)
Quarter: 2011Q3

REPORT INFORMATION
  Report Type: 
  Country: None (occurrence: None)
  Receive Date: 20110930
  Receipt Date: 20110930
  Transmission Date: 20111222
  Serious: Yes (Disabling, Other)
  Sender: FDA-Public Use
  Company Number: None

PATIENT
  Sex: Female
  Weight: 87.7 kg

DRUGS (2)
  1. SINEMET [Suspect]
     Dosage: 25/100 MG 2 TABLETS 3X DAY PO
     Route: 048
  2. SINEMET [Suspect]
     Indication: PARKINSON'S DISEASE
     Dosage: CONTINUOUS

REACTIONS (8)
  - GAIT DISTURBANCE [None]
  - FALL [None]
  - DYSPHAGIA [None]
  - PRODUCT SUBSTITUTION ISSUE [None]
  - PARKINSON'S DISEASE [None]
  - QUALITY OF LIFE DECREASED [None]
  - DIZZINESS [None]
  - CONDITION AGGRAVATED [None]
